FAERS Safety Report 7344779-8 (Version None)
Quarter: 2011Q1

REPORT INFORMATION
  Report Type: 
  Country: None (occurrence: None)
  Receive Date: 20110310
  Receipt Date: 20110215
  Transmission Date: 20110831
  Serious: No
  Sender: FDA-Public Use
  Company Number: US-B.I. PHARMACEUTICALS,INC./RIDGEFIELD-2011-BP-05613BP

PATIENT
  Sex: Male

DRUGS (2)
  1. CHEMOTHERAPY [Concomitant]
     Indication: HEPATIC NEOPLASM MALIGNANT
  2. PRADAXA [Suspect]
     Indication: ATRIAL FIBRILLATION
     Dosage: 300 MG
     Route: 048
     Dates: start: 20110211

REACTIONS (5)
  - ABDOMINAL PAIN LOWER [None]
  - CONSTIPATION [None]
  - FLATULENCE [None]
  - PAINFUL DEFAECATION [None]
  - ABDOMINAL PAIN UPPER [None]
